FAERS Safety Report 4551021-X (Version None)
Quarter: 2005Q1

REPORT INFORMATION
  Report Type: 
  Country: None (occurrence: None)
  Receive Date: 20050113
  Receipt Date: 20040106
  Transmission Date: 20050727
  Serious: Yes (Hospitalization)
  Sender: FDA-Public Use
  Company Number: US-BRISTOL-MYERS SQUIBB COMPANY-12471470

PATIENT
  Age: 34 Year
  Sex: Male
  Weight: 73 kg

DRUGS (4)
  1. TRAZODONE HCL [Suspect]
     Indication: SLEEP DISORDER
     Route: 048
     Dates: start: 20030101, end: 20030101
  2. VICODIN [Concomitant]
  3. XANAX [Concomitant]
  4. LEXAPRO [Concomitant]

REACTIONS (1)
  - ERECTION INCREASED [None]
